FAERS Safety Report 5153693-8 (Version None)
Quarter: 2006Q4

REPORT INFORMATION
  Report Type: 
  Country: None (occurrence: None)
  Receive Date: 20061114
  Receipt Date: 20061025
  Transmission Date: 20070319
  Serious: Yes (Other)
  Sender: FDA-Public Use
  Company Number: 2006SP005087

PATIENT
  Age: 42 Year
  Sex: Female

DRUGS (2)
  1. RIBAVIRIN [Suspect]
     Indication: HEPATITIS C
  2. PEG-INTRON [Suspect]
     Indication: HEPATITIS C

REACTIONS (8)
  - CHOROIDAL NEOVASCULARISATION [None]
  - CYTOMEGALOVIRUS ANTIBODY POSITIVE [None]
  - EYE HAEMORRHAGE [None]
  - HEPATIC FIBROSIS [None]
  - RETINOPATHY [None]
  - VIRAEMIA [None]
  - VISUAL ACUITY REDUCED [None]
  - VISUAL DISTURBANCE [None]
